FAERS Safety Report 21273696 (Version 1)
Quarter: 2022Q3

REPORT INFORMATION
  Report Type: Spontaneous
  Country: US (occurrence: US)
  Receive Date: 20220831
  Receipt Date: 20220831
  Transmission Date: 20221026
  Serious: No
  Sender: FDA-Public Use
  Company Number: US-ELI_LILLY_AND_COMPANY-US202208015550

PATIENT
  Sex: Female

DRUGS (1)
  1. TALTZ [Suspect]
     Active Substance: IXEKIZUMAB
     Indication: Psoriatic arthropathy
     Dosage: 80 MG, OTHER(EVERY FOUR WEEKS)
     Route: 058
     Dates: start: 202111

REACTIONS (3)
  - Psoriasis [Unknown]
  - Injection site swelling [Recovered/Resolved]
  - Injection site pruritus [Unknown]
